FAERS Safety Report 25064621 (Version 2)
Quarter: 2025Q4

REPORT INFORMATION
  Report Type: Spontaneous
  Country: US (occurrence: US)
  Receive Date: 20250311
  Receipt Date: 20251110
  Transmission Date: 20260117
  Serious: No
  Sender: BIOGEN
  Company Number: US-BIOGEN-2024BI01288003

PATIENT
  Sex: Female

DRUGS (10)
  1. VUMERITY [Suspect]
     Active Substance: DIROXIMEL FUMARATE
     Indication: Multiple sclerosis
     Dosage: DOSAGE TEXT:TAKE 2 CAPSULES (462MG) BY MOUTH TWICE DAILY.
     Dates: start: 20241007
  2. HYDROXYCHLOROQUINE SULFATE [Concomitant]
     Active Substance: HYDROXYCHLOROQUINE SULFATE
  3. ASPIRIN [Concomitant]
     Active Substance: ASPIRIN
  4. DULOXETINE HYDROCHLORIDE [Concomitant]
     Active Substance: DULOXETINE HYDROCHLORIDE
  5. VITAMIN D3 [Concomitant]
     Active Substance: CHOLECALCIFEROL
  6. LEVOTHYROXINE SODIUM [Concomitant]
     Active Substance: LEVOTHYROXINE SODIUM
  7. MAGNESIUM [Concomitant]
     Active Substance: MAGNESIUM
  8. CARBAMAZEPINE [Concomitant]
     Active Substance: CARBAMAZEPINE
  9. AMPHETAMINE/DEXTROAMPHETA [Concomitant]
  10. CELECOXIB [Concomitant]
     Active Substance: CELECOXIB

REACTIONS (2)
  - Product dose omission issue [Unknown]
  - Nausea [Unknown]
